FAERS Safety Report 20585065 (Version 2)
Quarter: 2022Q2

REPORT INFORMATION
  Report Type: Spontaneous
  Country: US (occurrence: None)
  Receive Date: 20220311
  Receipt Date: 20220502
  Transmission Date: 20220721
  Serious: Yes (Other)
  Sender: FDA-Public Use
  Company Number: US-FARMAPROD-202203-0355

PATIENT
  Age: 58 Year
  Sex: Male

DRUGS (9)
  1. OXERVATE [Suspect]
     Active Substance: CENEGERMIN-BKBJ
     Indication: Hypoaesthesia eye
     Route: 047
     Dates: start: 20220202, end: 20220225
  2. OXERVATE [Suspect]
     Active Substance: CENEGERMIN-BKBJ
     Indication: Ulcerative keratitis
  3. ALEVE [Concomitant]
     Active Substance: NAPROXEN SODIUM
  4. MULTIVITAMIN 50 PLUS [Concomitant]
  5. PREDNISOLONE-NEPAFENAC [Concomitant]
  6. CIPROFLOXACIN-DEXAMETHASONE [Concomitant]
  7. ALLOPURINOL [Concomitant]
     Active Substance: ALLOPURINOL
  8. CIPROFLOXACIN [Concomitant]
     Active Substance: CIPROFLOXACIN
     Indication: Persistent corneal epithelial defect
     Route: 047
  9. PREDNISOLONE [Concomitant]
     Active Substance: PREDNISOLONE
     Indication: Keratoplasty

REACTIONS (1)
  - Corneal transplant [Not Recovered/Not Resolved]

NARRATIVE: CASE EVENT DATE: 20220226
